FAERS Safety Report 15298660 (Version 1)
Quarter: 2018Q4

REPORT INFORMATION
  Report Type: Spontaneous
  Country: JP (occurrence: JP)
  Receive Date: 20180820
  Receipt Date: 20180820
  Transmission Date: 20190204
  Serious: Yes (Death)
  Sender: FDA-Public Use
  Company Number: JP-NAPPMUNDI-GBR-2017-0051934

PATIENT
  Sex: Female

DRUGS (5)
  1. OXINORM (OXYCODONE HYDROCHLORIDE) [Suspect]
     Active Substance: OXYCODONE HYDROCHLORIDE
     Dosage: 100 MG, DAILY [20 MG/TIME INCREASED TO AROUND 5 TIMES]
     Route: 048
  2. OXINORM (OXYCODONE HYDROCHLORIDE) [Suspect]
     Active Substance: OXYCODONE HYDROCHLORIDE
     Dosage: UNK
     Route: 048
  3. METHADONE HYDROCHLORIDE. [Suspect]
     Active Substance: METHADONE HYDROCHLORIDE
     Indication: CANCER PAIN
     Dosage: 90 MG, DAILY
     Route: 048
     Dates: start: 201711, end: 20171228
  4. METHADONE HYDROCHLORIDE. [Suspect]
     Active Substance: METHADONE HYDROCHLORIDE
     Dosage: 75 MG, DAILY
     Route: 048
  5. OXINORM (OXYCODONE HYDROCHLORIDE) [Suspect]
     Active Substance: OXYCODONE HYDROCHLORIDE
     Indication: CANCER PAIN
     Dosage: 20 MG, BID
     Route: 048
     Dates: start: 201711, end: 20171228

REACTIONS (2)
  - Gastrointestinal perforation [Fatal]
  - Malaise [Recovered/Resolved]

NARRATIVE: CASE EVENT DATE: 201711
